FAERS Safety Report 10232718 (Version 1)
Quarter: 2014Q2

REPORT INFORMATION
  Report Type: Spontaneous
  Country: US (occurrence: None)
  Receive Date: 20140611
  Receipt Date: 20140611
  Transmission Date: 20141212
  Serious: Yes (Disabling, Other)
  Sender: FDA-Public Use
  Company Number: None

PATIENT
  Age: 66 Year
  Sex: Male
  Weight: 87.54 kg

DRUGS (1)
  1. LEVAQUIN 500 MG 65862-537-50 [Suspect]
     Indication: PNEUMONIA
     Dosage: 500 MG/ TEN  ONCE DAILY  TAKEN BY MOUTH
     Route: 048
     Dates: start: 20140501, end: 20140508

REACTIONS (6)
  - Tendonitis [None]
  - Pain [None]
  - Abasia [None]
  - Heart rate irregular [None]
  - Dry eye [None]
  - Neuropathy peripheral [None]
